FAERS Safety Report 11878301 (Version 1)
Quarter: 2015Q4

REPORT INFORMATION
  Report Type: Spontaneous
  Country: None (occurrence: None)
  Receive Date: 20151229
  Receipt Date: 20151229
  Transmission Date: 20160305
  Serious: No
  Sender: FDA-Public Use
  Company Number: None

PATIENT
  Age: 74 Year
  Sex: Male

DRUGS (2)
  1. DORZOLAMADE [Suspect]
     Active Substance: DORZOLAMIDE
  2. LUMIGAN [Suspect]
     Active Substance: BIMATOPROST

REACTIONS (2)
  - Middle insomnia [None]
  - Eye pruritus [None]
